FAERS Safety Report 5522564-7 (Version None)
Quarter: 2007Q4

REPORT INFORMATION
  Report Type: 
  Country: None (occurrence: None)
  Receive Date: 20071120
  Receipt Date: 20071113
  Transmission Date: 20080405
  Serious: Yes (Hospitalization, Other)
  Sender: FDA-Public Use
  Company Number: MX-PFIZER INC-2007087230

PATIENT
  Sex: Male
  Weight: 80 kg

DRUGS (9)
  1. LIPITOR [Suspect]
     Indication: HYPERLIPIDAEMIA
     Route: 048
     Dates: start: 20061101, end: 20071005
  2. ANTIINFECTIVES [Interacting]
  3. KALETRA [Concomitant]
     Dosage: TEXT:2 TABLETS-FREQ:BID
     Route: 048
     Dates: end: 20071005
  4. ABACAVIR [Concomitant]
     Route: 048
     Dates: end: 20071005
  5. LAMIVUDINE [Concomitant]
     Route: 048
     Dates: end: 20071005
  6. LOSARTAN POTASSIUM [Concomitant]
     Route: 048
     Dates: start: 20061101
  7. NORVASC [Concomitant]
     Route: 048
     Dates: start: 20061101
  8. CLONAZEPAM [Concomitant]
     Dosage: TEXT:1 TABLET-FREQ:AT NIGHT
     Route: 048
  9. LORATADINE [Concomitant]

REACTIONS (11)
  - CONFUSIONAL STATE [None]
  - DISTURBANCE IN ATTENTION [None]
  - DIZZINESS [None]
  - DRUG INTERACTION [None]
  - FATIGUE [None]
  - HEPATITIS [None]
  - MYALGIA [None]
  - PAIN IN EXTREMITY [None]
  - RENAL FAILURE ACUTE [None]
  - RHABDOMYOLYSIS [None]
  - WEIGHT DECREASED [None]
